FAERS Safety Report 13447415 (Version 1)
Quarter: 2017Q2

REPORT INFORMATION
  Report Type: Spontaneous
  Country: US (occurrence: US)
  Receive Date: 20170416
  Receipt Date: 20170416
  Transmission Date: 20170830
  Serious: Yes (Other)
  Sender: FDA-Public Use
  Company Number: None

PATIENT
  Age: 43 Year
  Sex: Female

DRUGS (1)
  1. SENSODYNE REPAIR AND PROTECT [Suspect]
     Active Substance: STANNOUS FLUORIDE
     Dosage: OTHER ROUTE:BRUSHED TEETH?
     Dates: start: 20170414, end: 20170415

REACTIONS (3)
  - Ageusia [None]
  - Oropharyngeal pain [None]
  - Anosmia [None]

NARRATIVE: CASE EVENT DATE: 20170414
